FAERS Safety Report 6935841-X (Version None)
Quarter: 2010Q3

REPORT INFORMATION
  Report Type: 
  Country: None (occurrence: None)
  Receive Date: 20100823
  Receipt Date: 20100809
  Transmission Date: 20110219
  Serious: Yes (Disabling)
  Sender: FDA-Public Use
  Company Number: GB-RANBAXY-2010RR-36235

PATIENT
  Age: 84 Year
  Sex: Male
  Weight: 95 kg

DRUGS (14)
  1. GABAPENTIN [Suspect]
     Indication: NEUROPATHY PERIPHERAL
     Dosage: 300 MG, QD
     Dates: start: 20100622, end: 20100622
  2. ASPIRIN [Concomitant]
     Dosage: 75 MG, QD
  3. ARANESP [Concomitant]
  4. ATORVASTATIN CALCIUM [Concomitant]
     Dosage: 10 MG, QD
  5. CAPSAICIN [Concomitant]
  6. CHLORPHENAMINE [Concomitant]
     Dosage: 4 MG, TID
  7. OMEPRAZOLE [Concomitant]
     Dosage: 20 MG, QD
  8. ONE-ALPHA [Concomitant]
     Dosage: 500 NG, UNK
  9. RAMIPRIL [Concomitant]
     Dosage: 2.5 MG, QD
  10. SENNA [Concomitant]
     Dosage: 7.5 MG, BID
  11. SEVELAMER [Concomitant]
     Dosage: 800 MG, TID
  12. SOLARAZE [Concomitant]
  13. TRAMADOL HYDROCHLORIDE [Concomitant]
     Dosage: 50 MG, QID
  14. XALATAN [Concomitant]

REACTIONS (3)
  - ARTHRALGIA [None]
  - MUSCULAR WEAKNESS [None]
  - PAIN IN EXTREMITY [None]
